FAERS Safety Report 7898243-8 (Version None)
Quarter: 2011Q4

REPORT INFORMATION
  Report Type: 
  Country: None (occurrence: None)
  Receive Date: 20111107
  Receipt Date: 20111028
  Transmission Date: 20120403
  Serious: Yes (Hospitalization, Congenital Anomaly)
  Sender: FDA-Public Use
  Company Number: US-GLAXOSMITHKLINE-A0950765A

PATIENT
  Sex: Female
  Weight: 1.1 kg

DRUGS (4)
  1. PAXIL [Suspect]
     Indication: MAJOR DEPRESSION
     Dosage: 40MG PER DAY
  2. MAGNESIUM SULFATE [Concomitant]
  3. STEROIDS [Concomitant]
  4. ANTIBIOTICS [Concomitant]

REACTIONS (8)
  - DOUBLE OUTLET RIGHT VENTRICLE [None]
  - HEART BLOCK CONGENITAL [None]
  - CONGENITAL PULMONARY HYPERTENSION [None]
  - COR TRIATRIATUM [None]
  - FOETAL EXPOSURE DURING PREGNANCY [None]
  - ATRIAL SEPTAL DEFECT [None]
  - VENTRICULAR SEPTAL DEFECT [None]
  - TALIPES [None]
